FAERS Safety Report 7622694-X (Version None)
Quarter: 2011Q3

REPORT INFORMATION
  Report Type: 
  Country: None (occurrence: None)
  Receive Date: 20110712
  Receipt Date: 20110628
  Transmission Date: 20111222
  Serious: Yes (Death)
  Sender: FDA-Public Use
  Company Number: JP-2011-10914

PATIENT
  Age: 73 Year
  Sex: Male
  Weight: 55 kg

DRUGS (3)
  1. PURSENNID (SENNOSIDE) [Concomitant]
  2. PLETAL [Suspect]
     Indication: CEREBRAL INFARCTION
     Dosage: 100 MG MILLIGRAMS, BID, ORAL
     Route: 048
     Dates: start: 20080123, end: 20110223
  3. PLETAL [Suspect]
     Indication: CEREBRAL INFARCTION
     Dosage: 100 MG MILLIGRAMS, BID, ORAL
     Route: 048
     Dates: start: 20110224, end: 20110413

REACTIONS (4)
  - HAEMATEMESIS [None]
  - SUDDEN DEATH [None]
  - RESUSCITATION [None]
  - CONSTIPATION [None]
